FAERS Safety Report 8839791 (Version 1)
Quarter: 2012Q4

REPORT INFORMATION
  Report Type: 
  Country: US (occurrence: US)
  Receive Date: 20121015
  Receipt Date: 20121015
  Transmission Date: 20130627
  Serious: Yes (Disabling)
  Sender: FDA-Public Use
  Company Number: US-BRISTOL-MYERS SQUIBB COMPANY-16206146

PATIENT
  Age: 66 Year
  Sex: Male

DRUGS (4)
  1. KENALOG-40 INJ [Suspect]
     Indication: DIABETIC RETINAL OEDEMA
     Dosage: Route:intravitreal inj
1DF:one 4mg dose
     Dates: start: 20110425
  2. INSULIN [Concomitant]
  3. GLUCOPHAGE [Concomitant]
  4. DIOVAN [Concomitant]

REACTIONS (2)
  - Blindness [Recovered/Resolved]
  - Eye inflammation [Recovered/Resolved]
